FAERS Safety Report 22323662 (Version 1)
Quarter: 2023Q2

REPORT INFORMATION
  Report Type: Spontaneous
  Country: IE (occurrence: IE)
  Receive Date: 20230516
  Receipt Date: 20230516
  Transmission Date: 20230722
  Serious: Yes (Death, Other)
  Sender: FDA-Public Use
  Company Number: IE-AMGEN-IRLSP2023080751

PATIENT
  Sex: Male

DRUGS (1)
  1. ADALIMUMAB [Suspect]
     Active Substance: ADALIMUMAB
     Indication: Hidradenitis
     Dosage: 40 MILLIGRAM, Q2WK
     Route: 058

REACTIONS (10)
  - Pneumonia aspiration [Fatal]
  - Tubulointerstitial nephritis [Unknown]
  - Acute kidney injury [Unknown]
  - Renal tubular necrosis [Unknown]
  - Left ventricular hypertrophy [Unknown]
  - Renal amyloidosis [Unknown]
  - Kidney fibrosis [Unknown]
  - Fall [Unknown]
  - Splenomegaly [Unknown]
  - Skin disorder [Unknown]
